FAERS Safety Report 7573215-1 (Version None)
Quarter: 2011Q2

REPORT INFORMATION
  Report Type: 
  Country: None (occurrence: None)
  Receive Date: 20110627
  Receipt Date: 20110621
  Transmission Date: 20111010
  Serious: Yes (Other)
  Sender: FDA-Public Use
  Company Number: HU-PFIZER INC-2011138175

PATIENT
  Age: 64 Year
  Sex: Female
  Weight: 90 kg

DRUGS (1)
  1. ATORVASTATIN CALCIUM [Suspect]
     Dosage: UNK, TWICE DAILY
     Dates: start: 20110202, end: 20110525

REACTIONS (3)
  - WEIGHT INCREASED [None]
  - ARTHRALGIA [None]
  - JOINT SWELLING [None]
